FAERS Safety Report 7005984-3 (Version None)
Quarter: 2010Q3

REPORT INFORMATION
  Report Type: 
  Country: None (occurrence: None)
  Receive Date: 20100921
  Receipt Date: 20100907
  Transmission Date: 20110219
  Serious: Yes (Other)
  Sender: FDA-Public Use
  Company Number: US-B.I. PHARMACEUTICALS,INC./RIDGEFIELD-2010-BP-10095BP

PATIENT
  Age: 58 Year
  Sex: Female

DRUGS (2)
  1. DULCOLAX [Suspect]
     Indication: BOWEL PREPARATION
     Route: 048
     Dates: start: 20100824
  2. MIRALAX [Suspect]
     Indication: PREOPERATIVE CARE
     Route: 048
     Dates: start: 20100824

REACTIONS (6)
  - ABDOMINAL PAIN UPPER [None]
  - ASTHENIA [None]
  - CONTUSION [None]
  - DEHYDRATION [None]
  - FALL [None]
  - LOSS OF CONSCIOUSNESS [None]
